FAERS Safety Report 9563550 (Version 1)
Quarter: 2013Q3

REPORT INFORMATION
  Report Type: Spontaneous
  Country: GB (occurrence: None)
  Receive Date: 20130926
  Receipt Date: 20130926
  Transmission Date: 20140515
  Serious: Yes (Life-Threatening, Hospitalization, Other)
  Sender: FDA-Public Use
  Company Number: AUR-APL-2013-07801

PATIENT
  Age: 78 Year
  Sex: Male

DRUGS (5)
  1. CEFALEXIN (CEFALEXIN) [Suspect]
     Route: 048
     Dates: start: 20120210, end: 20120216
  2. CALCEOS (LEKOVIT CA) [Concomitant]
  3. MADOPAR (MADOPAR) [Concomitant]
  4. RIVASTIGMINE (RIVASTIGMINE) [Concomitant]
  5. VISCOTEARS (CARBOMER) [Concomitant]

REACTIONS (1)
  - Clostridium difficile infection [None]
